FAERS Safety Report 11957081 (Version 2)
Quarter: 2016Q1

REPORT INFORMATION
  Report Type: Spontaneous
  Country: US (occurrence: US)
  Receive Date: 20160126
  Receipt Date: 20160229
  Transmission Date: 20160526
  Serious: No
  Sender: FDA-Public Use
  Company Number: US-LUNDBECK-DKLU2008376

PATIENT
  Age: 88 Year
  Sex: Male

DRUGS (7)
  1. NORTHERA [Suspect]
     Active Substance: DROXIDOPA
     Route: 065
  2. MIDODRINE [Suspect]
     Active Substance: MIDODRINE
     Indication: PRODUCT USED FOR UNKNOWN INDICATION
     Route: 065
  3. NORTHERA [Suspect]
     Active Substance: DROXIDOPA
     Route: 065
  4. NORTHERA [Suspect]
     Active Substance: DROXIDOPA
     Route: 065
  5. NORTHERA [Suspect]
     Active Substance: DROXIDOPA
     Indication: PRODUCT USED FOR UNKNOWN INDICATION
     Route: 065
  6. NORTHERA [Suspect]
     Active Substance: DROXIDOPA
     Dosage: 200MG/200MG/100MG FOR A TOTAL DOSE OF 500MG
     Route: 065
  7. MIDODRINE [Suspect]
     Active Substance: MIDODRINE
     Route: 065

REACTIONS (1)
  - Blood pressure increased [Unknown]

NARRATIVE: CASE EVENT DATE: 20151223
